FAERS Safety Report 6454628-8 (Version None)
Quarter: 2009Q4

REPORT INFORMATION
  Report Type: 
  Country: None (occurrence: None)
  Receive Date: 20091118
  Receipt Date: 20091109
  Transmission Date: 20100525
  Serious: Yes (Hospitalization)
  Sender: FDA-Public Use
  Company Number: SPV1-2009-02235

PATIENT
  Age: 60 Year
  Sex: Male

DRUGS (1)
  1. FOSRENOL [Suspect]
     Indication: HYPERPHOSPHATAEMIA
     Dosage: 2000 MG, WITH MEALS, ORAL
     Route: 048
     Dates: start: 20090401

REACTIONS (2)
  - FALL [None]
  - VERTEBRAL ARTERY THROMBOSIS [None]
